FAERS Safety Report 9307787 (Version 2)
Quarter: 2013Q2

REPORT INFORMATION
  Report Type: Spontaneous
  Country: US (occurrence: US)
  Receive Date: 20130524
  Receipt Date: 20130609
  Transmission Date: 20140414
  Serious: Yes (Other)
  Sender: FDA-Public Use
  Company Number: US-SANOFI-AVENTIS-2013SA052149

PATIENT
  Age: 55 Year
  Sex: Female
  Weight: 53 kg

DRUGS (6)
  1. LANTUS [Suspect]
     Indication: DIABETES MELLITUS
     Dosage: PRODUCT START FROM MORE THAT 10 YEARS. DOSE:50 UNIT(S)
     Route: 051
  2. NOVOLOG [Concomitant]
  3. METFORMIN [Concomitant]
  4. BYETTA [Concomitant]
  5. LIPITOR [Concomitant]
  6. LEVOTHYROXINE [Concomitant]

REACTIONS (3)
  - Renal failure [Unknown]
  - Glycosylated haemoglobin decreased [Unknown]
  - Weight decreased [Recovered/Resolved]
